FAERS Safety Report 9418732 (Version 1)
Quarter: 2013Q3

REPORT INFORMATION
  Report Type: Report from Study
  Country: CA (occurrence: CA)
  Receive Date: 20130725
  Receipt Date: 20130725
  Transmission Date: 20140515
  Serious: Yes (Hospitalization, Other)
  Sender: FDA-Public Use
  Company Number: CA-JNJFOC-20130712725

PATIENT
  Sex: Female
  Weight: 79.38 kg

DRUGS (2)
  1. REMICADE [Suspect]
     Indication: CROHN^S DISEASE
     Dosage: BEGAN APPROXIMATELY 2-3 YEARS AGO
     Route: 042
  2. REMICADE [Suspect]
     Indication: CROHN^S DISEASE
     Dosage: SINCE APPROXIMATELY 6 MONTHS PRIOR TO TIME OF THE REPORT
     Route: 042

REACTIONS (2)
  - Diverticulitis [Recovering/Resolving]
  - Drug effect decreased [Recovering/Resolving]
